FAERS Safety Report 7043377-3 (Version None)
Quarter: 2010Q4

REPORT INFORMATION
  Report Type: 
  Country: None (occurrence: None)
  Receive Date: 20101013
  Receipt Date: 20101007
  Transmission Date: 20110411
  Serious: Yes (Hospitalization)
  Sender: FDA-Public Use
  Company Number: US-AMGEN-KDL444181

PATIENT
  Sex: Female

DRUGS (2)
  1. ENBREL [Suspect]
     Indication: PSORIASIS
     Route: 058
     Dates: start: 20060701
  2. HUMIRA [Concomitant]

REACTIONS (9)
  - CYSTITIS [None]
  - DERMATITIS ALLERGIC [None]
  - GASTRIC BYPASS [None]
  - HEADACHE [None]
  - INFLUENZA [None]
  - INJECTION SITE PAIN [None]
  - NASOPHARYNGITIS [None]
  - URINARY TRACT INFECTION [None]
  - VULVOVAGINAL ULCERATION [None]
